FAERS Safety Report 10036988 (Version 1)
Quarter: 2014Q1

REPORT INFORMATION
  Report Type: Spontaneous
  Country: US (occurrence: US)
  Receive Date: 20140326
  Receipt Date: 20140326
  Transmission Date: 20141002
  Serious: No
  Sender: FDA-Public Use
  Company Number: US-BIOGENIDEC-2014BI026217

PATIENT
  Sex: Female

DRUGS (4)
  1. TECFIDERA [Suspect]
     Indication: MULTIPLE SCLEROSIS
     Route: 048
     Dates: start: 201402
  2. TECFIDERA [Suspect]
     Indication: MULTIPLE SCLEROSIS
     Route: 048
  3. ADVIL [Concomitant]
  4. VITAMIN D [Concomitant]

REACTIONS (5)
  - Sunburn [Unknown]
  - Flushing [Unknown]
  - Pruritus [Unknown]
  - Gastrointestinal disorder [Unknown]
  - Vomiting [Unknown]
